FAERS Safety Report 8997885 (Version 4)
Quarter: 2013Q1

REPORT INFORMATION
  Report Type: Spontaneous
  Country: BE (occurrence: BE)
  Receive Date: 20130104
  Receipt Date: 20130117
  Transmission Date: 20140127
  Serious: Yes (Other)
  Sender: FDA-Public Use
  Company Number: PHHY2013BE001115

PATIENT
  Age: 30 Year
  Sex: Female

DRUGS (3)
  1. GILENYA [Suspect]
     Indication: MULTIPLE SCLEROSIS
     Dosage: 0.5 MG, QD
     Route: 048
     Dates: start: 20121015
  2. EUTHYROX [Concomitant]
     Indication: HYPOTHYROIDISM
     Dosage: 75 UNITS DAILY
     Route: 048
  3. GESTODELLE [Concomitant]
     Indication: CONTRACEPTION
     Dosage: 20 DAILY
     Route: 048

REACTIONS (3)
  - Angina pectoris [Unknown]
  - Chest discomfort [Recovered/Resolved]
  - Chest pain [Recovering/Resolving]
